FAERS Safety Report 9013347 (Version 2)
Quarter: 2013Q2

REPORT INFORMATION
  Report Type: Spontaneous
  Country: GR (occurrence: GR)
  Receive Date: 20130114
  Receipt Date: 20130411
  Transmission Date: 20140414
  Serious: Yes (Other)
  Sender: FDA-Public Use
  Company Number: GR-ABBOTT-13P-066-1035305-00

PATIENT
  Sex: Female

DRUGS (5)
  1. PROGESTERONE [Suspect]
     Indication: COMPLICATION OF PREGNANCY
     Route: 067
     Dates: start: 20120419, end: 201205
  2. PROGESTERONE [Suspect]
     Route: 067
     Dates: start: 20120419, end: 201205
  3. SALOSPIR [Concomitant]
     Indication: HYPERCOAGULATION
     Dates: end: 201205
  4. GLUCOPHAGE [Concomitant]
     Indication: PRODUCT USED FOR UNKNOWN INDICATION
     Dates: end: 201205
  5. FOLIDEX [Concomitant]
     Indication: PRODUCT USED FOR UNKNOWN INDICATION
     Dates: end: 201205

REACTIONS (4)
  - Insomnia [Recovered/Resolved]
  - Abortion [Unknown]
  - Poor quality sleep [Recovered/Resolved]
  - Drug ineffective [Unknown]
